FAERS Safety Report 25624785 (Version 1)
Quarter: 2025Q3

REPORT INFORMATION
  Report Type: Spontaneous
  Country: CA (occurrence: CA)
  Receive Date: 20250731
  Receipt Date: 20250731
  Transmission Date: 20251021
  Serious: Yes (Death, Life-Threatening, Hospitalization, Disabling, Congenital Anomaly, Other)
  Sender: Haleon PLC
  Company Number: CA-HALEON-2254790

PATIENT
  Age: 40 Year
  Sex: Female
  Weight: 96 kg

DRUGS (405)
  1. DICLOFENAC [Suspect]
     Active Substance: DICLOFENAC
     Indication: Rheumatoid arthritis
  2. DICLOFENAC [Suspect]
     Active Substance: DICLOFENAC
     Indication: Product used for unknown indication
     Route: 058
  3. ACETAMINOPHEN [Suspect]
     Active Substance: ACETAMINOPHEN
     Indication: Rheumatoid arthritis
  4. ACETAMINOPHEN [Suspect]
     Active Substance: ACETAMINOPHEN
     Indication: Product used for unknown indication
  5. ACETAMINOPHEN [Suspect]
     Active Substance: ACETAMINOPHEN
  6. ACETAMINOPHEN [Suspect]
     Active Substance: ACETAMINOPHEN
  7. ACETAMINOPHEN AND CODEINE [Suspect]
     Active Substance: ACETAMINOPHEN\CODEINE PHOSPHATE
     Indication: Product used for unknown indication
  8. ACTEMRA [Suspect]
     Active Substance: TOCILIZUMAB
     Indication: Rheumatoid arthritis
     Route: 058
  9. ACTEMRA [Suspect]
     Active Substance: TOCILIZUMAB
     Indication: Product used for unknown indication
     Route: 016
  10. ACTEMRA [Suspect]
     Active Substance: TOCILIZUMAB
  11. ACTEMRA [Suspect]
     Active Substance: TOCILIZUMAB
  12. ACTEMRA [Suspect]
     Active Substance: TOCILIZUMAB
  13. ACTEMRA [Suspect]
     Active Substance: TOCILIZUMAB
     Route: 058
  14. ACTEMRA [Suspect]
     Active Substance: TOCILIZUMAB
  15. ACTEMRA [Suspect]
     Active Substance: TOCILIZUMAB
     Route: 058
  16. ACTEMRA [Suspect]
     Active Substance: TOCILIZUMAB
     Route: 016
  17. ACTEMRA [Suspect]
     Active Substance: TOCILIZUMAB
     Route: 058
  18. ACTEMRA [Suspect]
     Active Substance: TOCILIZUMAB
  19. ACTEMRA [Suspect]
     Active Substance: TOCILIZUMAB
  20. ACTEMRA [Suspect]
     Active Substance: TOCILIZUMAB
     Route: 058
  21. ACTEMRA [Suspect]
     Active Substance: TOCILIZUMAB
  22. ACTEMRA [Suspect]
     Active Substance: TOCILIZUMAB
     Route: 058
  23. ACTEMRA [Suspect]
     Active Substance: TOCILIZUMAB
     Route: 058
  24. ACTEMRA [Suspect]
     Active Substance: TOCILIZUMAB
  25. ACTEMRA [Suspect]
     Active Substance: TOCILIZUMAB
  26. ACTEMRA [Suspect]
     Active Substance: TOCILIZUMAB
  27. ACTEMRA [Suspect]
     Active Substance: TOCILIZUMAB
  28. ACTEMRA [Suspect]
     Active Substance: TOCILIZUMAB
  29. ACTEMRA [Suspect]
     Active Substance: TOCILIZUMAB
  30. ACTEMRA [Suspect]
     Active Substance: TOCILIZUMAB
  31. ACTEMRA [Suspect]
     Active Substance: TOCILIZUMAB
  32. ACTEMRA [Suspect]
     Active Substance: TOCILIZUMAB
  33. ACTEMRA [Suspect]
     Active Substance: TOCILIZUMAB
  34. ACTEMRA [Suspect]
     Active Substance: TOCILIZUMAB
  35. ACTEMRA [Suspect]
     Active Substance: TOCILIZUMAB
  36. ACTEMRA [Suspect]
     Active Substance: TOCILIZUMAB
  37. ACTEMRA [Suspect]
     Active Substance: TOCILIZUMAB
  38. ACTEMRA [Suspect]
     Active Substance: TOCILIZUMAB
  39. ACTEMRA [Suspect]
     Active Substance: TOCILIZUMAB
  40. ACTEMRA [Suspect]
     Active Substance: TOCILIZUMAB
  41. ACTEMRA [Suspect]
     Active Substance: TOCILIZUMAB
     Route: 058
  42. ADALIMUMAB [Suspect]
     Active Substance: ADALIMUMAB
     Indication: Rheumatoid arthritis
     Route: 058
  43. ALENDRONATE SODIUM [Suspect]
     Active Substance: ALENDRONATE SODIUM
     Indication: Rheumatoid arthritis
  44. ALENDRONATE SODIUM [Suspect]
     Active Substance: ALENDRONATE SODIUM
     Indication: Product used for unknown indication
     Route: 048
  45. ALENDRONATE SODIUM [Suspect]
     Active Substance: ALENDRONATE SODIUM
  46. ALENDRONATE SODIUM [Suspect]
     Active Substance: ALENDRONATE SODIUM
     Route: 048
  47. ALENDRONATE SODIUM [Suspect]
     Active Substance: ALENDRONATE SODIUM
     Route: 016
  48. LEFLUNOMIDE [Suspect]
     Active Substance: LEFLUNOMIDE
     Indication: Rheumatoid arthritis
     Dosage: ROUTE: UNKNOWN
  49. LEFLUNOMIDE [Suspect]
     Active Substance: LEFLUNOMIDE
  50. LEFLUNOMIDE [Suspect]
     Active Substance: LEFLUNOMIDE
  51. LEFLUNOMIDE [Suspect]
     Active Substance: LEFLUNOMIDE
  52. LEFLUNOMIDE [Suspect]
     Active Substance: LEFLUNOMIDE
  53. LEFLUNOMIDE [Suspect]
     Active Substance: LEFLUNOMIDE
     Route: 048
  54. LEFLUNOMIDE [Suspect]
     Active Substance: LEFLUNOMIDE
     Route: 048
  55. LEFLUNOMIDE [Suspect]
     Active Substance: LEFLUNOMIDE
  56. LEFLUNOMIDE [Suspect]
     Active Substance: LEFLUNOMIDE
  57. LEFLUNOMIDE [Suspect]
     Active Substance: LEFLUNOMIDE
     Route: 048
  58. LEFLUNOMIDE [Suspect]
     Active Substance: LEFLUNOMIDE
  59. LEFLUNOMIDE [Suspect]
     Active Substance: LEFLUNOMIDE
  60. APREMILAST [Suspect]
     Active Substance: APREMILAST
     Indication: Rheumatoid arthritis
  61. ARAVA [Suspect]
     Active Substance: LEFLUNOMIDE
     Indication: Rheumatoid arthritis
     Route: 048
  62. ARAVA [Suspect]
     Active Substance: LEFLUNOMIDE
  63. ARAVA [Suspect]
     Active Substance: LEFLUNOMIDE
     Route: 048
  64. ARAVA [Suspect]
     Active Substance: LEFLUNOMIDE
     Route: 048
  65. ATOMOXETINE [Suspect]
     Active Substance: ATOMOXETINE
     Indication: Migraine
     Dosage: ROUTE: UNKNOWN
  66. ATOMOXETINE [Suspect]
     Active Substance: ATOMOXETINE
  67. ATOMOXETINE [Suspect]
     Active Substance: ATOMOXETINE
     Dosage: ROUTE: UNKNOWN
  68. ATOMOXETINE [Suspect]
     Active Substance: ATOMOXETINE
     Dosage: ROUTE: UNKNOWN
  69. ATOMOXETINE [Suspect]
     Active Substance: ATOMOXETINE
  70. ATOMOXETINE [Suspect]
     Active Substance: ATOMOXETINE
     Dosage: ROUTE: UNKNOWN
  71. BERINERT [Suspect]
     Active Substance: HUMAN C1-ESTERASE INHIBITOR
     Indication: Rheumatoid arthritis
  72. BERINERT [Suspect]
     Active Substance: HUMAN C1-ESTERASE INHIBITOR
     Indication: Product used for unknown indication
  73. BUTRANS [Suspect]
     Active Substance: BUPRENORPHINE
     Indication: Product used for unknown indication
  74. BUTRANS [Suspect]
     Active Substance: BUPRENORPHINE
  75. BUTRANS [Suspect]
     Active Substance: BUPRENORPHINE
     Indication: Product used for unknown indication
  76. CETIRIZINE [Suspect]
     Active Substance: CETIRIZINE HYDROCHLORIDE
     Indication: Rheumatoid arthritis
  77. CETIRIZINE [Suspect]
     Active Substance: CETIRIZINE HYDROCHLORIDE
  78. CETIRIZINE [Suspect]
     Active Substance: CETIRIZINE HYDROCHLORIDE
     Route: 048
  79. CETIRIZINE [Suspect]
     Active Substance: CETIRIZINE HYDROCHLORIDE
  80. CETIRIZINE [Suspect]
     Active Substance: CETIRIZINE HYDROCHLORIDE
  81. CETIRIZINE [Suspect]
     Active Substance: CETIRIZINE HYDROCHLORIDE
  82. CETIRIZINE [Suspect]
     Active Substance: CETIRIZINE HYDROCHLORIDE
     Route: 048
  83. CETIRIZINE [Suspect]
     Active Substance: CETIRIZINE HYDROCHLORIDE
  84. CETIRIZINE [Suspect]
     Active Substance: CETIRIZINE HYDROCHLORIDE
  85. CETIRIZINE [Suspect]
     Active Substance: CETIRIZINE HYDROCHLORIDE
  86. CHLORHEXIDINE GLUCONATE [Suspect]
     Active Substance: CHLORHEXIDINE GLUCONATE
     Indication: Rheumatoid arthritis
  87. CHLORHEXIDINE GLUCONATE [Suspect]
     Active Substance: CHLORHEXIDINE GLUCONATE
     Indication: Product used for unknown indication
  88. CHOLECALCIFEROL [Suspect]
     Active Substance: CHOLECALCIFEROL
     Indication: Product used for unknown indication
  89. CIMZIA [Suspect]
     Active Substance: CERTOLIZUMAB PEGOL
     Indication: Rheumatoid arthritis
     Route: 058
  90. CORTISONE ACETATE [Suspect]
     Active Substance: CORTISONE ACETATE
     Indication: Rheumatoid arthritis
  91. CORTISONE ACETATE [Suspect]
     Active Substance: CORTISONE ACETATE
     Indication: Rheumatoid arthritis
  92. CORTISONE ACETATE [Suspect]
     Active Substance: CORTISONE ACETATE
  93. CORTISONE ACETATE [Suspect]
     Active Substance: CORTISONE ACETATE
  94. CORTISONE ACETATE [Suspect]
     Active Substance: CORTISONE ACETATE
  95. COSENTYX [Suspect]
     Active Substance: SECUKINUMAB
     Indication: Rheumatoid arthritis
  96. COSENTYX [Suspect]
     Active Substance: SECUKINUMAB
     Indication: Psoriatic arthropathy
  97. COSENTYX [Suspect]
     Active Substance: SECUKINUMAB
     Indication: Product used for unknown indication
  98. DESOXIMETASONE [Suspect]
     Active Substance: DESOXIMETASONE
     Indication: Rheumatoid arthritis
     Route: 058
  99. DESOXIMETASONE [Suspect]
     Active Substance: DESOXIMETASONE
  100. DESOXIMETASONE [Suspect]
     Active Substance: DESOXIMETASONE
     Route: 058
  101. DESOXIMETASONE [Suspect]
     Active Substance: DESOXIMETASONE
     Route: 058
  102. DESOXIMETASONE [Suspect]
     Active Substance: DESOXIMETASONE
     Indication: Rheumatoid arthritis
  103. DICLOFENAC SODIUM [Suspect]
     Active Substance: DICLOFENAC SODIUM
     Indication: Rheumatoid arthritis
  104. DICLOFENAC SODIUM [Suspect]
     Active Substance: DICLOFENAC SODIUM
     Indication: Product used for unknown indication
  105. DICLOFENAC SODIUM [Suspect]
     Active Substance: DICLOFENAC SODIUM
     Indication: Rheumatoid arthritis
  106. DICLOFENAC SODIUM [Suspect]
     Active Substance: DICLOFENAC SODIUM
     Indication: Product used for unknown indication
  107. DICLOFENAC SODIUM [Suspect]
     Active Substance: DICLOFENAC SODIUM
  108. DICLOFENAC SODIUM [Suspect]
     Active Substance: DICLOFENAC SODIUM
  109. DICLOFENAC SODIUM [Suspect]
     Active Substance: DICLOFENAC SODIUM
     Route: 058
  110. DICLOFENAC SODIUM [Suspect]
     Active Substance: DICLOFENAC SODIUM
     Route: 058
  111. ERENUMAB [Suspect]
     Active Substance: ERENUMAB
     Indication: Product used for unknown indication
  112. ERENUMAB [Suspect]
     Active Substance: ERENUMAB
     Indication: Migraine
  113. ERENUMAB [Suspect]
     Active Substance: ERENUMAB
     Indication: Product used for unknown indication
  114. ERENUMAB [Suspect]
     Active Substance: ERENUMAB
     Indication: Migraine
  115. ERENUMAB [Suspect]
     Active Substance: ERENUMAB
  116. FLUMETHASONE [Suspect]
     Active Substance: FLUMETHASONE
     Indication: Product used for unknown indication
  117. FLUMETHASONE PIVALATE [Suspect]
     Active Substance: FLUMETHASONE PIVALATE
     Indication: Product used for unknown indication
  118. GOLD [Suspect]
     Active Substance: GOLD
     Indication: Product used for unknown indication
  119. HUMIRA [Suspect]
     Active Substance: ADALIMUMAB
     Indication: Rheumatoid arthritis
     Route: 058
  120. HUMIRA [Suspect]
     Active Substance: ADALIMUMAB
     Indication: Product used for unknown indication
     Route: 058
  121. HUMIRA [Suspect]
     Active Substance: ADALIMUMAB
  122. HUMIRA [Suspect]
     Active Substance: ADALIMUMAB
     Route: 058
  123. HUMIRA [Suspect]
     Active Substance: ADALIMUMAB
     Route: 058
  124. HUMIRA [Suspect]
     Active Substance: ADALIMUMAB
  125. HUMIRA [Suspect]
     Active Substance: ADALIMUMAB
  126. HYDROCORTISONE [Suspect]
     Active Substance: HYDROCORTISONE
     Indication: Product used for unknown indication
  127. HYDROXYCHLOROQUINE SULFATE [Suspect]
     Active Substance: HYDROXYCHLOROQUINE SULFATE
     Indication: Rheumatoid arthritis
     Route: 048
  128. HYDROXYCHLOROQUINE SULFATE [Suspect]
     Active Substance: HYDROXYCHLOROQUINE SULFATE
     Route: 016
  129. HYDROXYCHLOROQUINE SULFATE [Suspect]
     Active Substance: HYDROXYCHLOROQUINE SULFATE
     Route: 048
  130. HYDROXYCHLOROQUINE SULFATE [Suspect]
     Active Substance: HYDROXYCHLOROQUINE SULFATE
  131. HYDROXYCHLOROQUINE SULFATE [Suspect]
     Active Substance: HYDROXYCHLOROQUINE SULFATE
     Route: 048
  132. HYDROXYCHLOROQUINE SULFATE [Suspect]
     Active Substance: HYDROXYCHLOROQUINE SULFATE
     Dosage: ROUTE: UNKNOWN
  133. HYDROXYCHLOROQUINE SULFATE [Suspect]
     Active Substance: HYDROXYCHLOROQUINE SULFATE
  134. HYDROXYCHLOROQUINE SULFATE [Suspect]
     Active Substance: HYDROXYCHLOROQUINE SULFATE
  135. HYDROXYCHLOROQUINE SULFATE [Suspect]
     Active Substance: HYDROXYCHLOROQUINE SULFATE
  136. HYDROXYCHLOROQUINE SULFATE [Suspect]
     Active Substance: HYDROXYCHLOROQUINE SULFATE
     Dosage: ROUTE: UNKNOWN
  137. IMURAN [Suspect]
     Active Substance: AZATHIOPRINE
     Indication: Rheumatoid arthritis
  138. INFLIXIMAB [Suspect]
     Active Substance: INFLIXIMAB
     Indication: Rheumatoid arthritis
  139. INFLIXIMAB [Suspect]
     Active Substance: INFLIXIMAB
     Indication: Product used for unknown indication
  140. INFLIXIMAB [Suspect]
     Active Substance: INFLIXIMAB
  141. INFLIXIMAB [Suspect]
     Active Substance: INFLIXIMAB
  142. INFLIXIMAB [Suspect]
     Active Substance: INFLIXIMAB
  143. INFLIXIMAB [Suspect]
     Active Substance: INFLIXIMAB
  144. INFLIXIMAB [Suspect]
     Active Substance: INFLIXIMAB
  145. INFLIXIMAB [Suspect]
     Active Substance: INFLIXIMAB
  146. INFLIXIMAB [Suspect]
     Active Substance: INFLIXIMAB
  147. INFLIXIMAB [Suspect]
     Active Substance: INFLIXIMAB
  148. INFLIXIMAB [Suspect]
     Active Substance: INFLIXIMAB
     Indication: Rheumatoid arthritis
  149. INFLIXIMAB [Suspect]
     Active Substance: INFLIXIMAB
     Indication: Product used for unknown indication
  150. ISOPROPYL ALCOHOL [Suspect]
     Active Substance: ISOPROPYL ALCOHOL
     Indication: Product used for unknown indication
  151. ISOPROPYL ALCOHOL [Suspect]
     Active Substance: ISOPROPYL ALCOHOL
     Indication: Product used for unknown indication
  152. KEVZARA [Suspect]
     Active Substance: SARILUMAB
     Indication: Product used for unknown indication
  153. LAMICTAL [Suspect]
     Active Substance: LAMOTRIGINE
     Indication: Product used for unknown indication
     Route: 048
  154. LAMICTAL [Suspect]
     Active Substance: LAMOTRIGINE
     Route: 048
  155. LAMICTAL [Suspect]
     Active Substance: LAMOTRIGINE
     Route: 048
  156. LAMICTAL [Suspect]
     Active Substance: LAMOTRIGINE
     Route: 048
  157. LAMICTAL [Suspect]
     Active Substance: LAMOTRIGINE
     Route: 048
  158. LAMICTAL [Suspect]
     Active Substance: LAMOTRIGINE
     Route: 048
  159. LAMICTAL [Suspect]
     Active Substance: LAMOTRIGINE
     Route: 048
  160. LAMICTAL [Suspect]
     Active Substance: LAMOTRIGINE
     Route: 048
  161. LAMICTAL [Suspect]
     Active Substance: LAMOTRIGINE
     Route: 048
  162. METHOTREXATE [Suspect]
     Active Substance: METHOTREXATE
     Indication: Rheumatoid arthritis
     Route: 048
  163. METHYLPREDNISOLONE [Suspect]
     Active Substance: METHYLPREDNISOLONE
     Indication: Product used for unknown indication
  164. METHYLPREDNISOLONE [Suspect]
     Active Substance: METHYLPREDNISOLONE
  165. METHYLPREDNISOLONE SODIUM SUCCINATE [Suspect]
     Active Substance: METHYLPREDNISOLONE SODIUM SUCCINATE
     Indication: Product used for unknown indication
  166. MYOCHRYSINE [Suspect]
     Active Substance: GOLD SODIUM THIOMALATE
     Indication: Rheumatoid arthritis
     Route: 030
  167. MYOCHRYSINE [Suspect]
     Active Substance: GOLD SODIUM THIOMALATE
     Route: 030
  168. NAPROXEN [Suspect]
     Active Substance: NAPROXEN
     Indication: Product used for unknown indication
  169. NAPROXEN SODIUM [Suspect]
     Active Substance: NAPROXEN SODIUM
     Indication: Rheumatoid arthritis
     Dosage: ROUTE: UNKNOWN
  170. NAPROXEN SODIUM [Suspect]
     Active Substance: NAPROXEN SODIUM
     Dosage: ROUTE: UNKNOWN
  171. NAPROXEN SODIUM [Suspect]
     Active Substance: NAPROXEN SODIUM
  172. NICOTINAMIDE [Suspect]
     Active Substance: NIACINAMIDE
     Indication: Product used for unknown indication
  173. NICOTINAMIDE [Suspect]
     Active Substance: NIACINAMIDE
  174. PERIOGARD [Suspect]
     Active Substance: CHLORHEXIDINE GLUCONATE
     Indication: Product used for unknown indication
  175. PREDNISONE [Suspect]
     Active Substance: PREDNISONE
     Indication: Rheumatoid arthritis
     Route: 048
  176. PREDNISONE [Suspect]
     Active Substance: PREDNISONE
     Route: 048
  177. PREDNISONE [Suspect]
     Active Substance: PREDNISONE
     Route: 048
  178. PREDNISONE [Suspect]
     Active Substance: PREDNISONE
     Route: 048
  179. PREDNISONE [Suspect]
     Active Substance: PREDNISONE
  180. PREDNISONE [Suspect]
     Active Substance: PREDNISONE
  181. PREDNISONE [Suspect]
     Active Substance: PREDNISONE
     Route: 048
  182. PREDNISONE [Suspect]
     Active Substance: PREDNISONE
  183. PREDNISONE [Suspect]
     Active Substance: PREDNISONE
  184. PSEUDOEPHEDRINE [Suspect]
     Active Substance: PSEUDOEPHEDRINE
     Indication: Product used for unknown indication
  185. PSEUDOEPHEDRINE HYDROCHLORIDE [Suspect]
     Active Substance: PSEUDOEPHEDRINE HYDROCHLORIDE
     Indication: Rheumatoid arthritis
  186. PSEUDOEPHEDRINE HYDROCHLORIDE [Suspect]
     Active Substance: PSEUDOEPHEDRINE HYDROCHLORIDE
  187. PSEUDOEPHEDRINE HYDROCHLORIDE [Suspect]
     Active Substance: PSEUDOEPHEDRINE HYDROCHLORIDE
  188. PSEUDOEPHEDRINE HYDROCHLORIDE [Suspect]
     Active Substance: PSEUDOEPHEDRINE HYDROCHLORIDE
  189. RANITIDINE [Suspect]
     Active Substance: RANITIDINE
     Indication: Product used for unknown indication
  190. CETIRIZINE HYDROCHLORIDE\PSEUDOEPHEDRINE HYDROCHLORIDE [Suspect]
     Active Substance: CETIRIZINE HYDROCHLORIDE\PSEUDOEPHEDRINE HYDROCHLORIDE
     Indication: Rheumatoid arthritis
  191. CETIRIZINE HYDROCHLORIDE\PSEUDOEPHEDRINE HYDROCHLORIDE [Suspect]
     Active Substance: CETIRIZINE HYDROCHLORIDE\PSEUDOEPHEDRINE HYDROCHLORIDE
     Indication: Product used for unknown indication
  192. CETIRIZINE HYDROCHLORIDE\PSEUDOEPHEDRINE HYDROCHLORIDE [Suspect]
     Active Substance: CETIRIZINE HYDROCHLORIDE\PSEUDOEPHEDRINE HYDROCHLORIDE
  193. CETIRIZINE HYDROCHLORIDE\PSEUDOEPHEDRINE HYDROCHLORIDE [Suspect]
     Active Substance: CETIRIZINE HYDROCHLORIDE\PSEUDOEPHEDRINE HYDROCHLORIDE
  194. CETIRIZINE HYDROCHLORIDE\PSEUDOEPHEDRINE HYDROCHLORIDE [Suspect]
     Active Substance: CETIRIZINE HYDROCHLORIDE\PSEUDOEPHEDRINE HYDROCHLORIDE
  195. CETIRIZINE HYDROCHLORIDE\PSEUDOEPHEDRINE HYDROCHLORIDE [Suspect]
     Active Substance: CETIRIZINE HYDROCHLORIDE\PSEUDOEPHEDRINE HYDROCHLORIDE
  196. CETIRIZINE HYDROCHLORIDE\PSEUDOEPHEDRINE HYDROCHLORIDE [Suspect]
     Active Substance: CETIRIZINE HYDROCHLORIDE\PSEUDOEPHEDRINE HYDROCHLORIDE
  197. CETIRIZINE HYDROCHLORIDE\PSEUDOEPHEDRINE HYDROCHLORIDE [Suspect]
     Active Substance: CETIRIZINE HYDROCHLORIDE\PSEUDOEPHEDRINE HYDROCHLORIDE
  198. REMICADE [Suspect]
     Active Substance: INFLIXIMAB
     Indication: Product used for unknown indication
  199. RIBOFLAVIN [Suspect]
     Active Substance: RIBOFLAVIN
     Indication: Product used for unknown indication
  200. RIBOFLAVIN [Suspect]
     Active Substance: RIBOFLAVIN
  201. RITUXIMAB [Suspect]
     Active Substance: RITUXIMAB
     Indication: Rheumatoid arthritis
  202. RITUXIMAB [Suspect]
     Active Substance: RITUXIMAB
     Indication: Product used for unknown indication
  203. ADALIMUMAB [Suspect]
     Active Substance: ADALIMUMAB
     Indication: Rheumatoid arthritis
  204. ADALIMUMAB [Suspect]
     Active Substance: ADALIMUMAB
  205. ADALIMUMAB [Suspect]
     Active Substance: ADALIMUMAB
     Route: 058
  206. ADALIMUMAB [Suspect]
     Active Substance: ADALIMUMAB
     Route: 058
  207. ADALIMUMAB [Suspect]
     Active Substance: ADALIMUMAB
     Route: 058
  208. PREDNISONE [Suspect]
     Active Substance: PREDNISONE
     Indication: Rheumatoid arthritis
     Route: 048
  209. PREDNISONE [Suspect]
     Active Substance: PREDNISONE
     Route: 048
  210. PREDNISONE [Suspect]
     Active Substance: PREDNISONE
     Route: 048
  211. PREDNISONE [Suspect]
     Active Substance: PREDNISONE
     Route: 048
  212. PREDNISONE [Suspect]
     Active Substance: PREDNISONE
  213. PREDNISONE [Suspect]
     Active Substance: PREDNISONE
     Route: 048
  214. PREDNISONE [Suspect]
     Active Substance: PREDNISONE
     Route: 048
  215. PREDNISONE [Suspect]
     Active Substance: PREDNISONE
     Route: 048
  216. BOTULINUM TOXIN TYPE A [Suspect]
     Active Substance: BOTULINUM TOXIN TYPE A
     Indication: Product used for unknown indication
  217. CALCIUM ASCORBATE [Suspect]
     Active Substance: CALCIUM ASCORBATE
     Indication: Product used for unknown indication
  218. CALCIUM ASCORBATE [Suspect]
     Active Substance: CALCIUM ASCORBATE
  219. CALCIUM ASCORBATE [Suspect]
     Active Substance: CALCIUM ASCORBATE
  220. CALCIUM CITRATE [Suspect]
     Active Substance: CALCIUM CITRATE
     Indication: Product used for unknown indication
  221. CALCIUM GLUBIONATE [Suspect]
     Active Substance: CALCIUM GLUBIONATE
     Indication: Product used for unknown indication
  222. CALCIUM GLUBIONATE [Suspect]
     Active Substance: CALCIUM GLUBIONATE
  223. CALCIUM GLUBIONATE [Suspect]
     Active Substance: CALCIUM GLUBIONATE
     Route: 016
  224. CALCIUM GLUCONATE [Suspect]
     Active Substance: CALCIUM GLUCONATE
     Indication: Product used for unknown indication
  225. CANDESARTAN [Suspect]
     Active Substance: CANDESARTAN
     Indication: Rheumatoid arthritis
     Route: 048
  226. CANDESARTAN [Suspect]
     Active Substance: CANDESARTAN
     Indication: Product used for unknown indication
  227. CANDESARTAN [Suspect]
     Active Substance: CANDESARTAN
     Indication: Migraine
  228. CELECOXIB [Suspect]
     Active Substance: CELECOXIB
     Indication: Product used for unknown indication
     Dosage: ROUTE: UNKNOWN
  229. CELECOXIB [Suspect]
     Active Substance: CELECOXIB
     Dosage: ROUTE: UNKNOWN
  230. CELECOXIB [Suspect]
     Active Substance: CELECOXIB
     Dosage: ROUTE: UNKNOWN
  231. CELECOXIB [Suspect]
     Active Substance: CELECOXIB
     Route: 048
  232. CELECOXIB [Suspect]
     Active Substance: CELECOXIB
     Dosage: ROUTE: UNKNOWN
  233. CELECOXIB [Suspect]
     Active Substance: CELECOXIB
     Dosage: ROUTE: UNKNOWN
  234. CELECOXIB [Suspect]
     Active Substance: CELECOXIB
     Dosage: ROUTE: UNKNOWN
  235. CELECOXIB [Suspect]
     Active Substance: CELECOXIB
     Indication: Product used for unknown indication
     Route: 048
  236. CIMZIA [Suspect]
     Active Substance: CERTOLIZUMAB PEGOL
     Indication: Rheumatoid arthritis
     Route: 058
  237. CIMZIA [Suspect]
     Active Substance: CERTOLIZUMAB PEGOL
     Route: 058
  238. CIMZIA [Suspect]
     Active Substance: CERTOLIZUMAB PEGOL
     Route: 058
  239. CIMZIA [Suspect]
     Active Substance: CERTOLIZUMAB PEGOL
     Route: 058
  240. DOMPERIDONE MALEATE [Suspect]
     Active Substance: DOMPERIDONE MALEATE
     Indication: Product used for unknown indication
  241. DOMPERIDONE MALEATE [Suspect]
     Active Substance: DOMPERIDONE MALEATE
  242. ENBREL [Suspect]
     Active Substance: ETANERCEPT
     Indication: Rheumatoid arthritis
     Route: 058
  243. ENBREL [Suspect]
     Active Substance: ETANERCEPT
     Route: 058
  244. ENBREL [Suspect]
     Active Substance: ETANERCEPT
     Route: 058
  245. ENBREL [Suspect]
     Active Substance: ETANERCEPT
     Route: 058
  246. ENBREL [Suspect]
     Active Substance: ETANERCEPT
  247. ENBREL [Suspect]
     Active Substance: ETANERCEPT
  248. ENBREL [Suspect]
     Active Substance: ETANERCEPT
     Dosage: ROUTE: UNKNOWN
  249. ENBREL [Suspect]
     Active Substance: ETANERCEPT
     Route: 058
  250. ENBREL [Suspect]
     Active Substance: ETANERCEPT
     Route: 058
  251. ENBREL [Suspect]
     Active Substance: ETANERCEPT
     Route: 058
  252. ENBREL [Suspect]
     Active Substance: ETANERCEPT
     Route: 058
  253. ENBREL [Suspect]
     Active Substance: ETANERCEPT
     Route: 058
  254. ERELZI [Suspect]
     Active Substance: ETANERCEPT-SZZS
     Indication: Rheumatoid arthritis
     Route: 058
  255. ERELZI [Suspect]
     Active Substance: ETANERCEPT-SZZS
     Route: 048
  256. ERELZI [Suspect]
     Active Substance: ETANERCEPT-SZZS
     Route: 058
  257. ERELZI [Suspect]
     Active Substance: ETANERCEPT-SZZS
     Route: 058
  258. ERELZI [Suspect]
     Active Substance: ETANERCEPT-SZZS
  259. ERELZI [Suspect]
     Active Substance: ETANERCEPT-SZZS
  260. ERGOCALCIFEROL [Suspect]
     Active Substance: ERGOCALCIFEROL
     Indication: Product used for unknown indication
  261. ERGOCALCIFEROL [Suspect]
     Active Substance: ERGOCALCIFEROL
  262. FOLIC ACID [Suspect]
     Active Substance: FOLIC ACID
     Indication: Rheumatoid arthritis
     Route: 048
  263. FOLIC ACID [Suspect]
     Active Substance: FOLIC ACID
     Indication: Product used for unknown indication
     Route: 048
  264. FOLIC ACID [Suspect]
     Active Substance: FOLIC ACID
     Route: 048
  265. FOLIC ACID [Suspect]
     Active Substance: FOLIC ACID
     Route: 058
  266. FOLIC ACID [Suspect]
     Active Substance: FOLIC ACID
  267. FOLIC ACID [Suspect]
     Active Substance: FOLIC ACID
     Route: 048
  268. FOLIC ACID [Suspect]
     Active Substance: FOLIC ACID
     Route: 058
  269. FOLIC ACID [Suspect]
     Active Substance: FOLIC ACID
     Route: 048
  270. FOLIC ACID [Suspect]
     Active Substance: FOLIC ACID
  271. FOLIC ACID [Suspect]
     Active Substance: FOLIC ACID
     Route: 048
  272. FOLIC ACID [Suspect]
     Active Substance: FOLIC ACID
  273. FOLIC ACID [Suspect]
     Active Substance: FOLIC ACID
  274. FOLIC ACID [Suspect]
     Active Substance: FOLIC ACID
  275. FOLIC ACID [Suspect]
     Active Substance: FOLIC ACID
  276. FOLIC ACID [Suspect]
     Active Substance: FOLIC ACID
  277. FOLIC ACID [Suspect]
     Active Substance: FOLIC ACID
  278. FOLIC ACID [Suspect]
     Active Substance: FOLIC ACID
     Route: 058
  279. FOLIC ACID [Suspect]
     Active Substance: FOLIC ACID
  280. FOLIC ACID [Suspect]
     Active Substance: FOLIC ACID
  281. FOLIC ACID [Suspect]
     Active Substance: FOLIC ACID
  282. FOLIC ACID [Suspect]
     Active Substance: FOLIC ACID
     Route: 048
  283. FOLIC ACID [Suspect]
     Active Substance: FOLIC ACID
     Indication: Rheumatoid arthritis
  284. FOLIC ACID [Suspect]
     Active Substance: FOLIC ACID
     Indication: Product used for unknown indication
  285. FOSAMAX [Suspect]
     Active Substance: ALENDRONATE SODIUM
     Indication: Rheumatoid arthritis
     Route: 048
  286. FOSAMAX [Suspect]
     Active Substance: ALENDRONATE SODIUM
     Indication: Rheumatoid arthritis
     Route: 016
  287. FOSAMAX [Suspect]
     Active Substance: ALENDRONATE SODIUM
     Route: 058
  288. HAIR KERATIN AMINO ACIDS GOLD COMPLEX [Suspect]
     Active Substance: HAIR KERATIN AMINO ACIDS GOLD COMPLEX
     Indication: Rheumatoid arthritis
  289. GOLD SODIUM THIOMALATE [Suspect]
     Active Substance: GOLD SODIUM THIOMALATE
     Indication: Rheumatoid arthritis
  290. GOLD SODIUM THIOMALATE [Suspect]
     Active Substance: GOLD SODIUM THIOMALATE
     Route: 030
  291. GOLD SODIUM THIOMALATE [Suspect]
     Active Substance: GOLD SODIUM THIOMALATE
     Route: 030
  292. HUMIRA [Suspect]
     Active Substance: ADALIMUMAB
     Indication: Rheumatoid arthritis
     Route: 058
  293. HUMIRA [Suspect]
     Active Substance: ADALIMUMAB
     Indication: Product used for unknown indication
  294. HYDROCORTISONE [Suspect]
     Active Substance: HYDROCORTISONE
     Indication: Product used for unknown indication
  295. HYDROCORTISONE PROBUTATE [Suspect]
     Active Substance: HYDROCORTISONE PROBUTATE
     Indication: Rheumatoid arthritis
  296. HYDROCORTISONE PROBUTATE [Suspect]
     Active Substance: HYDROCORTISONE PROBUTATE
     Indication: Product used for unknown indication
  297. HYDROXYCHLOROQUINE [Suspect]
     Active Substance: HYDROXYCHLOROQUINE
     Indication: Product used for unknown indication
     Dosage: ROUTE: UNKNOWN
  298. HYDROXYCHLOROQUINE [Suspect]
     Active Substance: HYDROXYCHLOROQUINE
     Route: 058
  299. HYDROXYCHLOROQUINE [Suspect]
     Active Substance: HYDROXYCHLOROQUINE
     Route: 048
  300. HYDROXYCHLOROQUINE [Suspect]
     Active Substance: HYDROXYCHLOROQUINE
     Route: 048
  301. HYDROXYCHLOROQUINE [Suspect]
     Active Substance: HYDROXYCHLOROQUINE
  302. HYDROXYCHLOROQUINE [Suspect]
     Active Substance: HYDROXYCHLOROQUINE
     Route: 048
  303. HYDROXYCHLOROQUINE [Suspect]
     Active Substance: HYDROXYCHLOROQUINE
     Route: 058
  304. HYDROXYCHLOROQUINE [Suspect]
     Active Substance: HYDROXYCHLOROQUINE
     Route: 048
  305. HYDROXYCHLOROQUINE [Suspect]
     Active Substance: HYDROXYCHLOROQUINE
     Route: 016
  306. HYDROXYCHLOROQUINE [Suspect]
     Active Substance: HYDROXYCHLOROQUINE
     Route: 058
  307. HYDROXYCHLOROQUINE [Suspect]
     Active Substance: HYDROXYCHLOROQUINE
  308. HYDROXYCHLOROQUINE [Suspect]
     Active Substance: HYDROXYCHLOROQUINE
     Route: 048
  309. HYDROXYCHLOROQUINE [Suspect]
     Active Substance: HYDROXYCHLOROQUINE
  310. HYDROXYCHLOROQUINE [Suspect]
     Active Substance: HYDROXYCHLOROQUINE
     Route: 048
  311. HYDROXYCHLOROQUINE [Suspect]
     Active Substance: HYDROXYCHLOROQUINE
     Route: 048
  312. HYDROXYCHLOROQUINE [Suspect]
     Active Substance: HYDROXYCHLOROQUINE
     Route: 048
  313. HYDROXYCHLOROQUINE [Suspect]
     Active Substance: HYDROXYCHLOROQUINE
     Route: 048
  314. HYDROXYCHLOROQUINE [Suspect]
     Active Substance: HYDROXYCHLOROQUINE
  315. HYDROXYCHLOROQUINE [Suspect]
     Active Substance: HYDROXYCHLOROQUINE
  316. HYDROXYCHLOROQUINE [Suspect]
     Active Substance: HYDROXYCHLOROQUINE
  317. HYDROXYCHLOROQUINE [Suspect]
     Active Substance: HYDROXYCHLOROQUINE
     Route: 048
  318. HYDROXYCHLOROQUINE [Suspect]
     Active Substance: HYDROXYCHLOROQUINE
  319. IMURAN [Suspect]
     Active Substance: AZATHIOPRINE
     Indication: Rheumatoid arthritis
  320. IMURAN [Suspect]
     Active Substance: AZATHIOPRINE
  321. IMURAN [Suspect]
     Active Substance: AZATHIOPRINE
  322. LEFLUNOMIDE [Suspect]
     Active Substance: LEFLUNOMIDE
     Indication: Rheumatoid arthritis
     Route: 048
  323. LEFLUNOMIDE [Suspect]
     Active Substance: LEFLUNOMIDE
     Indication: Product used for unknown indication
     Dosage: ROUTE: UNKNOWN
  324. LEFLUNOMIDE [Suspect]
     Active Substance: LEFLUNOMIDE
     Dosage: ROUTE: UNKNOWN
  325. LEFLUNOMIDE [Suspect]
     Active Substance: LEFLUNOMIDE
  326. LEFLUNOMIDE [Suspect]
     Active Substance: LEFLUNOMIDE
  327. LEFLUNOMIDE [Suspect]
     Active Substance: LEFLUNOMIDE
     Indication: Rheumatoid arthritis
     Route: 048
  328. LEFLUNOMIDE [Suspect]
     Active Substance: LEFLUNOMIDE
     Indication: Product used for unknown indication
  329. MAGNESIUM CITRATE [Suspect]
     Active Substance: MAGNESIUM CITRATE
     Indication: Product used for unknown indication
  330. METFORMIN HYDROCHLORIDE [Suspect]
     Active Substance: METFORMIN HYDROCHLORIDE
     Indication: Product used for unknown indication
  331. METFORMIN HYDROCHLORIDE [Suspect]
     Active Substance: METFORMIN HYDROCHLORIDE
  332. METFORMIN HYDROCHLORIDE [Suspect]
     Active Substance: METFORMIN HYDROCHLORIDE
  333. METHOTREXATE [Suspect]
     Active Substance: METHOTREXATE
     Indication: Rheumatoid arthritis
  334. METHOTREXATE [Suspect]
     Active Substance: METHOTREXATE
     Route: 048
  335. METHOTREXATE [Suspect]
     Active Substance: METHOTREXATE
     Route: 013
  336. METHOTREXATE [Suspect]
     Active Substance: METHOTREXATE
     Route: 048
  337. METHOTREXATE [Suspect]
     Active Substance: METHOTREXATE
     Route: 048
  338. METHOTREXATE [Suspect]
     Active Substance: METHOTREXATE
  339. METHOTREXATE [Suspect]
     Active Substance: METHOTREXATE
  340. METHOTREXATE [Suspect]
     Active Substance: METHOTREXATE
  341. METHOTREXATE [Suspect]
     Active Substance: METHOTREXATE
     Route: 048
  342. METHOTREXATE [Suspect]
     Active Substance: METHOTREXATE
     Route: 048
  343. METHOTREXATE [Suspect]
     Active Substance: METHOTREXATE
     Route: 058
  344. METHOTREXATE [Suspect]
     Active Substance: METHOTREXATE
     Route: 058
  345. METHOTREXATE [Suspect]
     Active Substance: METHOTREXATE
     Route: 048
  346. METHOTREXATE [Suspect]
     Active Substance: METHOTREXATE
  347. METHOTREXATE [Suspect]
     Active Substance: METHOTREXATE
     Route: 016
  348. METHOTREXATE [Suspect]
     Active Substance: METHOTREXATE
     Dosage: ROUTE: UNKNOWN
  349. METHOTREXATE [Suspect]
     Active Substance: METHOTREXATE
     Route: 013
  350. METHOTREXATE [Suspect]
     Active Substance: METHOTREXATE
     Route: 058
  351. METHOTREXATE [Suspect]
     Active Substance: METHOTREXATE
     Route: 058
  352. METHOTREXATE [Suspect]
     Active Substance: METHOTREXATE
  353. METHOTREXATE [Suspect]
     Active Substance: METHOTREXATE
  354. METHOTREXATE [Suspect]
     Active Substance: METHOTREXATE
     Route: 048
  355. METHOTREXATE [Suspect]
     Active Substance: METHOTREXATE
     Route: 048
  356. METHOTREXATE [Suspect]
     Active Substance: METHOTREXATE
     Route: 048
  357. MINOCYCLINE [Suspect]
     Active Substance: MINOCYCLINE HYDROCHLORIDE
     Indication: Product used for unknown indication
  358. MINOCYCLINE HYDROCHLORIDE [Suspect]
     Active Substance: MINOCYCLINE HYDROCHLORIDE
     Indication: Product used for unknown indication
  359. MYRBETRIQ [Suspect]
     Active Substance: MIRABEGRON
     Indication: Product used for unknown indication
  360. MYRBETRIQ [Suspect]
     Active Substance: MIRABEGRON
  361. MYRBETRIQ [Suspect]
     Active Substance: MIRABEGRON
  362. MYRBETRIQ [Suspect]
     Active Substance: MIRABEGRON
     Dosage: ROUTE: UNKNOWN
  363. MYRBETRIQ [Suspect]
     Active Substance: MIRABEGRON
     Dosage: DOSE FORM: EXTENDED RELEASE TABLET?ROUTE: UNKNOWN
  364. NAPROXEN [Suspect]
     Active Substance: NAPROXEN
     Indication: Product used for unknown indication
  365. NAPROXEN [Suspect]
     Active Substance: NAPROXEN
  366. NUCALA [Suspect]
     Active Substance: MEPOLIZUMAB
     Indication: Product used for unknown indication
  367. NUCALA [Suspect]
     Active Substance: MEPOLIZUMAB
  368. ORENCIA [Suspect]
     Active Substance: ABATACEPT
     Indication: Rheumatoid arthritis
  369. ORENCIA [Suspect]
     Active Substance: ABATACEPT
     Route: 058
  370. ORENCIA [Suspect]
     Active Substance: ABATACEPT
  371. ORENCIA [Suspect]
     Active Substance: ABATACEPT
  372. ORENCIA [Suspect]
     Active Substance: ABATACEPT
  373. ORENCIA [Suspect]
     Active Substance: ABATACEPT
  374. ORENCIA [Suspect]
     Active Substance: ABATACEPT
  375. ORENCIA [Suspect]
     Active Substance: ABATACEPT
  376. ORENCIA [Suspect]
     Active Substance: ABATACEPT
  377. ORENCIA [Suspect]
     Active Substance: ABATACEPT
  378. ORENCIA [Suspect]
     Active Substance: ABATACEPT
     Route: 058
  379. ORENCIA [Suspect]
     Active Substance: ABATACEPT
  380. OXYCODONE [Suspect]
     Active Substance: OXYCODONE
     Indication: Product used for unknown indication
  381. OXYCODONE TEREPHTHALATE [Suspect]
     Active Substance: OXYCODONE TEREPHTHALATE
     Indication: Product used for unknown indication
  382. PHENYLEPHRINE HYDROCHLORIDE [Suspect]
     Active Substance: PHENYLEPHRINE HYDROCHLORIDE
     Indication: Product used for unknown indication
  383. PHENYLEPHRINE HYDROCHLORIDE [Suspect]
     Active Substance: PHENYLEPHRINE HYDROCHLORIDE
  384. PHTHALYLSULFATHIAZOLE [Suspect]
     Active Substance: PHTHALYLSULFATHIAZOLE
     Indication: Rheumatoid arthritis
  385. PHTHALYLSULFATHIAZOLE [Suspect]
     Active Substance: PHTHALYLSULFATHIAZOLE
     Indication: Product used for unknown indication
  386. PHTHALYLSULFATHIAZOLE [Suspect]
     Active Substance: PHTHALYLSULFATHIAZOLE
     Route: 048
  387. PHTHALYLSULFATHIAZOLE [Suspect]
     Active Substance: PHTHALYLSULFATHIAZOLE
  388. PHTHALYLSULFATHIAZOLE [Suspect]
     Active Substance: PHTHALYLSULFATHIAZOLE
     Route: 058
  389. PHTHALYLSULFATHIAZOLE [Suspect]
     Active Substance: PHTHALYLSULFATHIAZOLE
     Route: 048
  390. PHTHALYLSULFATHIAZOLE [Suspect]
     Active Substance: PHTHALYLSULFATHIAZOLE
  391. PHTHALYLSULFATHIAZOLE [Suspect]
     Active Substance: PHTHALYLSULFATHIAZOLE
  392. PLAQUENIL [Suspect]
     Active Substance: HYDROXYCHLOROQUINE SULFATE
     Indication: Rheumatoid arthritis
  393. PREDNISONE [Suspect]
     Active Substance: PREDNISONE
     Indication: Rheumatoid arthritis
  394. RAMIPRIL [Suspect]
     Active Substance: RAMIPRIL
     Indication: Rheumatoid arthritis
  395. RAMIPRIL [Suspect]
     Active Substance: RAMIPRIL
     Indication: Product used for unknown indication
  396. RAMIPRIL [Suspect]
     Active Substance: RAMIPRIL
     Route: 016
  397. REMICADE [Suspect]
     Active Substance: INFLIXIMAB
     Indication: Product used for unknown indication
  398. REMICADE [Suspect]
     Active Substance: INFLIXIMAB
  399. REMICADE [Suspect]
     Active Substance: INFLIXIMAB
     Route: 058
  400. REMICADE [Suspect]
     Active Substance: INFLIXIMAB
  401. REMICADE [Suspect]
     Active Substance: INFLIXIMAB
     Route: 058
  402. REMICADE [Suspect]
     Active Substance: INFLIXIMAB
  403. REMICADE [Suspect]
     Active Substance: INFLIXIMAB
  404. REMICADE [Suspect]
     Active Substance: INFLIXIMAB
     Route: 058
  405. REMICADE [Suspect]
     Active Substance: INFLIXIMAB
     Dosage: ROUTE: UNKNOWN

REACTIONS (10)
  - Lower respiratory tract infection [Fatal]
  - Live birth [Fatal]
  - Exposure during pregnancy [Fatal]
  - Helicobacter infection [Fatal]
  - Nasopharyngitis [Fatal]
  - Normal newborn [Fatal]
  - Onychomycosis [Fatal]
  - Pneumonia [Fatal]
  - Taste disorder [Fatal]
  - Wound infection [Fatal]
